FAERS Safety Report 4888413-5 (Version None)
Quarter: 2006Q1

REPORT INFORMATION
  Report Type: 
  Country: None (occurrence: None)
  Receive Date: 20060123
  Receipt Date: 20060116
  Transmission Date: 20060701
  Serious: Yes (Death)
  Sender: FDA-Public Use
  Company Number: US-ABBOTT-06P-163-0322296-00

PATIENT
  Sex: Female
  Weight: 46.308 kg

DRUGS (10)
  1. SYNTHROID [Suspect]
     Indication: THYROID DISORDER
     Route: 048
     Dates: start: 19961101
  2. PREDNISONE TAB [Concomitant]
     Indication: RESPIRATORY DISORDER
     Route: 048
  3. SPIRONOLACTONE [Concomitant]
     Indication: DRUG USE FOR UNKNOWN INDICATION
     Route: 048
  4. POTASSIUM [Concomitant]
     Indication: MINERAL SUPPLEMENTATION
     Route: 048
  5. AMLODIPINE BESYLATE [Concomitant]
     Indication: BLOOD PRESSURE
     Route: 048
  6. ESOMEPRAZOLE [Concomitant]
     Indication: GASTRIC DISORDER
     Route: 048
  7. BUPROPION HYDROCHLORIDE [Concomitant]
     Indication: NERVOUSNESS
     Route: 048
  8. RANITIDINE HYDROCHLORIDE [Concomitant]
     Indication: GASTROOESOPHAGEAL REFLUX DISEASE
     Route: 048
  9. FLUTICASONE PROPIONATE [Concomitant]
     Indication: RESPIRATORY DISORDER
     Route: 055
  10. ALBUTEROL [Concomitant]
     Indication: RESPIRATORY DISORDER
     Dosage: NEBULIZER
     Route: 055

REACTIONS (1)
  - CHRONIC OBSTRUCTIVE PULMONARY DISEASE [None]
